FAERS Safety Report 25246312 (Version 1)
Quarter: 2025Q2

REPORT INFORMATION
  Report Type: Spontaneous
  Country: US (occurrence: US)
  Receive Date: 20250428
  Receipt Date: 20250428
  Transmission Date: 20250717
  Serious: Yes (Hospitalization)
  Sender: AMGEN
  Company Number: US-AMGEN-USASP2025075522

PATIENT
  Sex: Male

DRUGS (5)
  1. PREDNISONE [Suspect]
     Active Substance: PREDNISONE
     Indication: Pemphigoid
     Route: 065
  2. RITUXIMAB [Suspect]
     Active Substance: RITUXIMAB
     Indication: Pemphigoid
     Route: 065
  3. DUPILUMAB [Concomitant]
     Active Substance: DUPILUMAB
  4. TACROLIMUS [Concomitant]
     Active Substance: TACROLIMUS
  5. APIXABAN [Concomitant]
     Active Substance: APIXABAN

REACTIONS (5)
  - Haematochezia [Unknown]
  - Pemphigoid [Unknown]
  - Oral candidiasis [Unknown]
  - Haemorrhoids [Unknown]
  - Off label use [Unknown]
